FAERS Safety Report 9988262 (Version 2)
Quarter: 2014Q1

REPORT INFORMATION
  Report Type: Report from Study
  Country: CN (occurrence: CN)
  Receive Date: 20140310
  Receipt Date: 20140324
  Transmission Date: 20141002
  Serious: Yes (Death)
  Sender: FDA-Public Use
  Company Number: CN-ROCHE-1361514

PATIENT
  Age: 61 Year
  Sex: Male

DRUGS (1)
  1. PEGASYS [Suspect]
     Indication: HEPATITIS B
     Route: 058
     Dates: start: 20060707, end: 200911

REACTIONS (3)
  - Death [Fatal]
  - Hepatic cancer [Fatal]
  - Pain [Unknown]
